FAERS Safety Report 5801231-6 (Version None)
Quarter: 2008Q3

REPORT INFORMATION
  Report Type: 
  Country: None (occurrence: None)
  Receive Date: 20080707
  Receipt Date: 20080623
  Transmission Date: 20090109
  Serious: Yes (Hospitalization)
  Sender: FDA-Public Use
  Company Number: US-JNJFOC-20080605946

PATIENT
  Sex: Female

DRUGS (4)
  1. DURAGESIC-100 [Suspect]
     Route: 062
  2. DURAGESIC-100 [Suspect]
     Indication: PAIN
     Route: 062
  3. FENTANYL TRANSDERMAL SYSTEM [Suspect]
     Indication: PAIN
     Route: 062
  4. KETEC [Suspect]
     Indication: DRUG USE FOR UNKNOWN INDICATION
     Route: 048

REACTIONS (12)
  - APPLICATION SITE EROSION [None]
  - APPLICATION SITE RASH [None]
  - BLOOD GLUCOSE INCREASED [None]
  - DIABETES MELLITUS [None]
  - DRUG DEPENDENCE [None]
  - FOOT OPERATION [None]
  - HEPATIC FAILURE [None]
  - INCORRECT DRUG ADMINISTRATION DURATION [None]
  - MEMORY IMPAIRMENT [None]
  - PANCREATIC INSUFFICIENCY [None]
  - SURGERY [None]
  - VOMITING [None]
